FAERS Safety Report 19479674 (Version 1)
Quarter: 2021Q3

REPORT INFORMATION
  Report Type: Spontaneous
  Country: CO (occurrence: CO)
  Receive Date: 20210701
  Receipt Date: 20210701
  Transmission Date: 20211014
  Serious: Yes (Death, Other)
  Sender: FDA-Public Use
  Company Number: CO-ROCHE-2859694

PATIENT
  Age: 66 Year
  Sex: Male

DRUGS (2)
  1. BEVACIZUMAB. [Suspect]
     Active Substance: BEVACIZUMAB
     Indication: LUNG NEOPLASM MALIGNANT
     Dosage: 3 CYCLES
     Route: 065
     Dates: start: 20190922, end: 20191128
  2. PACLITAXEL. [Concomitant]
     Active Substance: PACLITAXEL
     Indication: LUNG NEOPLASM MALIGNANT
     Dosage: 3 CYCLES
     Dates: start: 20190922, end: 20191128

REACTIONS (3)
  - Death [Fatal]
  - Lymphadenopathy [Unknown]
  - Pleural effusion [Unknown]

NARRATIVE: CASE EVENT DATE: 20200224
